FAERS Safety Report 12091935 (Version 1)
Quarter: 2016Q1

REPORT INFORMATION
  Report Type: Report from Study
  Country: US (occurrence: US)
  Receive Date: 20160219
  Receipt Date: 20160219
  Transmission Date: 20160526
  Serious: No
  Sender: FDA-Public Use
  Company Number: PHEH2016US003213

PATIENT
  Age: 63 Year
  Sex: Female

DRUGS (1)
  1. COSENTYX [Suspect]
     Active Substance: SECUKINUMAB
     Indication: PSORIASIS
     Dosage: 300 MG, QMO
     Dates: start: 20151203, end: 20160128

REACTIONS (8)
  - Pruritus [Unknown]
  - Urticaria [Unknown]
  - Diarrhoea [Unknown]
  - Rash pruritic [Unknown]
  - Skin plaque [Unknown]
  - Rash erythematous [Unknown]
  - Psoriasis [Unknown]
  - Burning sensation [Unknown]

NARRATIVE: CASE EVENT DATE: 20160205
